FAERS Safety Report 5307853-3 (Version None)
Quarter: 2007Q2

REPORT INFORMATION
  Report Type: 
  Country: None (occurrence: None)
  Receive Date: 20070419
  Receipt Date: 20070403
  Transmission Date: 20071010
  Serious: Yes (Other)
  Sender: FDA-Public Use
  Company Number: PHEH2007US04679

PATIENT
  Age: 76 Year
  Sex: Female
  Weight: 64.4108 kg

DRUGS (4)
  1. VISUDYNE [Suspect]
     Indication: MACULAR DEGENERATION
     Dosage: 10.2 MG DAILY IV
     Route: 042
     Dates: start: 20070322, end: 20070322
  2. AVASTIN [Suspect]
     Dosage: 1.25 MG DAILY EY
     Dates: start: 20070320, end: 20070320
  3. SYNTHROID [Concomitant]
  4. LIPITOR [Concomitant]

REACTIONS (3)
  - MACULOPATHY [None]
  - SCOTOMA [None]
  - VISUAL ACUITY REDUCED [None]
